FAERS Safety Report 21441213 (Version 1)
Quarter: 2022Q4

REPORT INFORMATION
  Report Type: Spontaneous
  Country: US (occurrence: None)
  Receive Date: 20221010
  Receipt Date: 20221010
  Transmission Date: 20230113
  Serious: Yes (Other)
  Sender: FDA-Public Use
  Company Number: None

PATIENT
  Age: 65 Year
  Sex: Female
  Weight: 50.7 kg

DRUGS (2)
  1. KANJINTI [Suspect]
     Active Substance: TRASTUZUMAB-ANNS
     Indication: Breast cancer metastatic
     Dosage: OTHER FREQUENCY : ONCE, 2MG/KG Q3WKS;?
     Route: 041
     Dates: start: 202110, end: 20211101
  2. OGIVRI [Suspect]
     Active Substance: TRASTUZUMAB-DKST
     Dosage: OTHER FREQUENCY : ONCE, 2MG/KG Q3WKS;?
     Route: 041
     Dates: start: 20200916, end: 20210112

REACTIONS (4)
  - Chest discomfort [None]
  - Dyspnoea [None]
  - Pruritus [None]
  - Infusion related reaction [None]

NARRATIVE: CASE EVENT DATE: 20200916
